FAERS Safety Report 6971384-5 (Version None)
Quarter: 2010Q3

REPORT INFORMATION
  Report Type: 
  Country: None (occurrence: None)
  Receive Date: 20100908
  Receipt Date: 20100901
  Transmission Date: 20110219
  Serious: Yes (Hospitalization, Other)
  Sender: FDA-Public Use
  Company Number: CZ-ROXANE LABORATORIES, INC.-2010-RO-01175RO

PATIENT
  Age: 61 Year
  Sex: Female

DRUGS (14)
  1. CYCLOPHOSPHAMIDE [Suspect]
     Indication: PEMPHIGUS
     Dosage: 50 MG
     Route: 048
     Dates: start: 20030101
  2. CYCLOPHOSPHAMIDE [Suspect]
     Indication: MULTIPLE MYELOMA
     Route: 042
     Dates: start: 20070101
  3. CYCLOPHOSPHAMIDE [Suspect]
     Dosage: 50 MG
     Route: 048
     Dates: start: 20070101
  4. CYCLOPHOSPHAMIDE [Suspect]
     Route: 042
  5. DEXAMETHASONE [Suspect]
     Indication: PEMPHIGUS
     Route: 048
     Dates: start: 20030101
  6. DEXAMETHASONE [Suspect]
     Indication: MULTIPLE MYELOMA
     Route: 048
     Dates: start: 20070101
  7. DEXAMETHASONE [Suspect]
     Route: 048
  8. DEXAMETHASONE [Suspect]
     Route: 048
  9. RITUXIMAB [Suspect]
     Indication: PEMPHIGUS
  10. DOXORUBICIN HCL [Suspect]
     Indication: MULTIPLE MYELOMA
     Route: 042
  11. THALIDOMIDE [Suspect]
     Indication: MULTIPLE MYELOMA
     Dosage: 100 MG
     Route: 048
  12. HEPARIN [Suspect]
     Indication: PROPHYLAXIS
  13. COTRIM [Suspect]
     Indication: PROPHYLAXIS
  14. BORTEZOMIB [Suspect]
     Indication: MULTIPLE MYELOMA
     Route: 042

REACTIONS (5)
  - ASTHENIA [None]
  - CONDITION AGGRAVATED [None]
  - DRUG INEFFECTIVE [None]
  - MULTIPLE MYELOMA [None]
  - NEURALGIA [None]
